FAERS Safety Report 24035473 (Version 2)
Quarter: 2024Q3

REPORT INFORMATION
  Report Type: Spontaneous
  Country: US (occurrence: US)
  Receive Date: 20240701
  Receipt Date: 20240731
  Transmission Date: 20241017
  Serious: No
  Sender: PFIZER
  Company Number: US-PFIZER INC-202300444594

PATIENT
  Age: 8 Year
  Sex: Male
  Weight: 17.7 kg

DRUGS (3)
  1. GENOTROPIN [Suspect]
     Active Substance: SOMATROPIN
     Indication: Bartter^s syndrome
     Dosage: 1.2 MG, DAILY AT BEDTIME
     Route: 058
  2. GENOTROPIN [Suspect]
     Active Substance: SOMATROPIN
     Indication: Short stature
     Dosage: 1.2 MG, DAILY AT BEDTIME
     Route: 058
     Dates: start: 20240619
  3. ALDACTONE [Concomitant]
     Active Substance: SPIRONOLACTONE
     Dosage: TAKE 10ML BY MOUTH ONCE DAILY FOR 210 DAYS
     Route: 048
     Dates: start: 20240430

REACTIONS (3)
  - Platelet count increased [Unknown]
  - Red cell distribution width decreased [Unknown]
  - Off label use [Unknown]

NARRATIVE: CASE EVENT DATE: 20220523
